FAERS Safety Report 13352402 (Version 1)
Quarter: 2017Q1

REPORT INFORMATION
  Report Type: Spontaneous
  Country: US (occurrence: US)
  Receive Date: 20170320
  Receipt Date: 20170320
  Transmission Date: 20170429
  Serious: No
  Sender: FDA-Public Use
  Company Number: US-ALLERGAN-1671482US

PATIENT
  Sex: Female
  Weight: 54.42 kg

DRUGS (1)
  1. OXYTROL [Suspect]
     Active Substance: OXYBUTYNIN
     Indication: URINARY INCONTINENCE
     Dosage: UNK
     Route: 062
     Dates: start: 201609, end: 201609

REACTIONS (3)
  - Application site erythema [Recovering/Resolving]
  - Application site nodule [Recovering/Resolving]
  - Application site inflammation [Recovering/Resolving]
